FAERS Safety Report 16478638 (Version 3)
Quarter: 2019Q3

REPORT INFORMATION
  Report Type: Report from Study
  Country: GB (occurrence: GB)
  Receive Date: 20190626
  Receipt Date: 20190806
  Transmission Date: 20191004
  Serious: Yes (Death)
  Sender: FDA-Public Use
  Company Number: PHHY2019GB147003

PATIENT
  Age: 44 Year
  Sex: Female

DRUGS (1)
  1. HYRIMOZ [Suspect]
     Active Substance: ADALIMUMAB-ADAZ
     Indication: CROHN^S DISEASE
     Dosage: UNK, Q2W (PRE-FILLED PEN)
     Route: 065
     Dates: start: 20190606

REACTIONS (4)
  - Pulmonary embolism [Fatal]
  - Loss of consciousness [Fatal]
  - Cardiac arrest [Fatal]
  - Circulatory collapse [Fatal]

NARRATIVE: CASE EVENT DATE: 20190616
